FAERS Safety Report 11589105 (Version 1)
Quarter: 2015Q4

REPORT INFORMATION
  Report Type: Spontaneous
  Country: US (occurrence: None)
  Receive Date: 20151001
  Receipt Date: 20151001
  Transmission Date: 20160304
  Serious: No
  Sender: FDA-Public Use
  Company Number: None

PATIENT
  Age: 35 Year
  Sex: Female

DRUGS (1)
  1. BOSULIF [Suspect]
     Active Substance: BOSUTINIB MONOHYDRATE
     Indication: CHRONIC MYELOID LEUKAEMIA
     Route: 048
     Dates: end: 20150904

REACTIONS (5)
  - Nausea [None]
  - Decreased activity [None]
  - Migraine [None]
  - Graft versus host disease [None]
  - Rash [None]

NARRATIVE: CASE EVENT DATE: 201508
